FAERS Safety Report 16773497 (Version 1)
Quarter: 2019Q3

REPORT INFORMATION
  Report Type: Spontaneous
  Country: US (occurrence: US)
  Receive Date: 20190904
  Receipt Date: 20190904
  Transmission Date: 20191005
  Serious: No
  Sender: FDA-Public Use
  Company Number: US-TEVA-2019-US-1101524

PATIENT
  Sex: Female

DRUGS (1)
  1. SEASONIQUE [Suspect]
     Active Substance: ETHINYL ESTRADIOL\LEVONORGESTREL
     Indication: CONTRACEPTION
     Route: 065

REACTIONS (5)
  - Amenorrhoea [Unknown]
  - Dysmenorrhoea [Unknown]
  - Inappropriate schedule of product administration [Unknown]
  - Thyroid disorder [Unknown]
  - Metrorrhagia [Unknown]
